FAERS Safety Report 10163224 (Version 3)
Quarter: 2014Q3

REPORT INFORMATION
  Report Type: Report from Study
  Country: AU (occurrence: AU)
  Receive Date: 20140509
  Receipt Date: 20140704
  Transmission Date: 20150326
  Serious: Yes (Hospitalization)
  Sender: FDA-Public Use
  Company Number: AU-BRISTOL-MYERS SQUIBB COMPANY-20702957

PATIENT
  Sex: Female

DRUGS (11)
  1. VITAMIN D [Concomitant]
     Active Substance: CHOLECALCIFEROL
  2. WARFARIN SODIUM. [Concomitant]
     Active Substance: WARFARIN SODIUM
  3. ALDACTONE [Concomitant]
     Active Substance: SPIRONOLACTONE
  4. FRUSEMIDE [Concomitant]
     Active Substance: FUROSEMIDE
  5. DIOVAN [Concomitant]
     Active Substance: VALSARTAN
  6. MAGNESIUM ASPARTATE [Concomitant]
     Active Substance: MAGNESIUM ASPARTATE
  7. DIABEX [Concomitant]
     Active Substance: METFORMIN HYDROCHLORIDE
  8. BYETTA [Suspect]
     Active Substance: EXENATIDE
     Indication: TYPE 2 DIABETES MELLITUS
     Dosage: INJECTION : ONGOING
     Route: 058
     Dates: start: 20131129
  9. AMLODIPINE [Concomitant]
     Active Substance: AMLODIPINE BESYLATE
  10. CRESTOR [Concomitant]
     Active Substance: ROSUVASTATIN CALCIUM
  11. LIPIDIL [Concomitant]
     Active Substance: FENOFIBRATE

REACTIONS (2)
  - Nausea [Not Recovered/Not Resolved]
  - Pulmonary embolism [Recovering/Resolving]

NARRATIVE: CASE EVENT DATE: 20131129
